FAERS Safety Report 6968383-6 (Version None)
Quarter: 2010Q3

REPORT INFORMATION
  Report Type: 
  Country: None (occurrence: None)
  Receive Date: 20100907
  Receipt Date: 20100827
  Transmission Date: 20110219
  Serious: Yes (Hospitalization)
  Sender: FDA-Public Use
  Company Number: DE-ROCHE-724178

PATIENT
  Sex: Female

DRUGS (6)
  1. TRASTUZUMAB [Suspect]
     Indication: BREAST CANCER
     Dosage: MAINTENANCE DOSE. DISCONTINUED.
     Route: 042
     Dates: start: 20100107
  2. LAPATINIB [Suspect]
     Indication: BREAST CANCER
     Dosage: DISCONTINUED.
     Route: 048
     Dates: start: 20100107
  3. DOCETAXEL [Suspect]
     Indication: BREAST CANCER
     Route: 042
     Dates: start: 20100107
  4. PROPAFENONE HYDROCHLORIDE [Concomitant]
     Dates: start: 20050901
  5. RAMIPRIL [Concomitant]
     Dates: start: 20100614, end: 20100616
  6. ASPIRIN [Concomitant]
     Dates: start: 19930101

REACTIONS (1)
  - ATRIAL FIBRILLATION [None]
